FAERS Safety Report 24795363 (Version 1)
Quarter: 2024Q4

REPORT INFORMATION
  Report Type: Spontaneous
  Country: AT (occurrence: AT)
  Receive Date: 20241231
  Receipt Date: 20241231
  Transmission Date: 20250115
  Serious: Yes (Life-Threatening)
  Sender: BAUSCH AND LOMB
  Company Number: None

PATIENT
  Age: 39 Year
  Sex: Female
  Weight: 85 kg

DRUGS (4)
  1. AZATHIOPRINE [Suspect]
     Active Substance: AZATHIOPRINE
     Indication: Product used for unknown indication
     Dosage: 200MG/D
     Route: 065
     Dates: start: 20150901, end: 20170803
  2. AZATHIOPRINE [Suspect]
     Active Substance: AZATHIOPRINE
     Dosage: RED AUF 150MG SEIT 4.8.2017
     Dates: start: 20170804
  3. ULTOMIRIS [Suspect]
     Active Substance: RAVULIZUMAB-CWVZ
     Indication: Product used for unknown indication
     Route: 042
     Dates: start: 20190501
  4. SOLIRIS [Suspect]
     Active Substance: ECULIZUMAB
     Indication: Product used for unknown indication
     Route: 042
     Dates: start: 20190501

REACTIONS (2)
  - Squamous cell carcinoma [Not Recovered/Not Resolved]
  - Tumour invasion [Not Recovered/Not Resolved]

NARRATIVE: CASE EVENT DATE: 20241101
